FAERS Safety Report 25993286 (Version 3)
Quarter: 2025Q4

REPORT INFORMATION
  Report Type: Spontaneous
  Country: US (occurrence: US)
  Receive Date: 20251104
  Receipt Date: 20251119
  Transmission Date: 20260117
  Serious: No
  Sender: ROCHE
  Company Number: US-ROCHE-10000421047

PATIENT
  Age: 78 Year
  Sex: Female
  Weight: 48.98 kg

DRUGS (4)
  1. XOLAIR [Suspect]
     Active Substance: OMALIZUMAB
     Indication: Idiopathic urticaria
     Dosage: 300MG/2ML
     Route: 058
     Dates: start: 2024
  2. XOLAIR [Suspect]
     Active Substance: OMALIZUMAB
     Dosage: 300MG/2ML
     Route: 058
     Dates: start: 202501
  3. SYMBICORT [Concomitant]
     Active Substance: BUDESONIDE\FORMOTEROL FUMARATE DIHYDRATE
     Indication: Seasonal allergy
     Route: 055
  4. FLUTICASON [FLUTICASONE] [Concomitant]
     Indication: Seasonal allergy
     Dosage: 2 SPRAYS IN EACH NOSTRIL AS NEEDED
     Route: 045

REACTIONS (6)
  - Product dose omission issue [Unknown]
  - Exposure via skin contact [Unknown]
  - Product quality issue [Unknown]
  - Device issue [Unknown]
  - Device use error [Unknown]
  - Pruritus [Recovered/Resolved]

NARRATIVE: CASE EVENT DATE: 20251026
